FAERS Safety Report 6482537-7 (Version None)
Quarter: 2009Q4

REPORT INFORMATION
  Report Type: 
  Country: None (occurrence: None)
  Receive Date: 20091208
  Receipt Date: 20091020
  Transmission Date: 20100525
  Serious: No
  Sender: FDA-Public Use
  Company Number: US-AMGEN-KDL370277

PATIENT
  Sex: Male
  Weight: 120.3 kg

DRUGS (2)
  1. ENBREL [Suspect]
     Indication: DRUG USE FOR UNKNOWN INDICATION
     Route: 058
  2. IBUPROFEN [Concomitant]

REACTIONS (2)
  - BLISTER [None]
  - SKIN ULCER [None]
